FAERS Safety Report 7347908-5 (Version None)
Quarter: 2011Q1

REPORT INFORMATION
  Report Type: 
  Country: None (occurrence: None)
  Receive Date: 20110311
  Receipt Date: 20110309
  Transmission Date: 20110831
  Serious: Yes (Hospitalization)
  Sender: FDA-Public Use
  Company Number: DE-ABBOTT-11P-062-0699391-00

PATIENT
  Sex: Female
  Weight: 74 kg

DRUGS (3)
  1. HUMIRA [Suspect]
     Indication: CROHN'S DISEASE
     Route: 058
     Dates: start: 20060515, end: 20060701
  2. HUMIRA [Suspect]
     Route: 058
     Dates: start: 20060801
  3. STEROID [Concomitant]
     Indication: CROHN'S DISEASE
     Route: 048

REACTIONS (6)
  - PYLORIC STENOSIS [None]
  - ABDOMINAL PAIN [None]
  - NAUSEA [None]
  - DECREASED APPETITE [None]
  - ABDOMINAL PAIN UPPER [None]
  - OBSTRUCTION GASTRIC [None]
